FAERS Safety Report 6981459-2 (Version None)
Quarter: 2010Q3

REPORT INFORMATION
  Report Type: 
  Country: None (occurrence: None)
  Receive Date: 20100909
  Receipt Date: 20100827
  Transmission Date: 20110219
  Serious: Yes (Hospitalization, Other)
  Sender: FDA-Public Use
  Company Number: ACO_01575_2010

PATIENT
  Age: 59 Year
  Sex: Male
  Weight: 68.0396 kg

DRUGS (6)
  1. AMPYRA [Suspect]
     Indication: GAIT DISTURBANCE
     Dosage: (10 MG 2X, AT 20:00 H AND 08:00 H ORAL)
     Route: 048
     Dates: start: 20100721, end: 20100722
  2. PYRIDOSTIGMINS [Concomitant]
  3. AMANITADINE [Concomitant]
  4. ZOCOR [Concomitant]
  5. LISIINOPRIL [Concomitant]
  6. PAROXETINE HCL [Concomitant]

REACTIONS (2)
  - FATIGUE [None]
  - GRAND MAL CONVULSION [None]
